FAERS Safety Report 10459109 (Version 3)
Quarter: 2014Q4

REPORT INFORMATION
  Report Type: Spontaneous
  Country: US (occurrence: US)
  Receive Date: 20140917
  Receipt Date: 20141017
  Transmission Date: 20150528
  Serious: Yes (Hospitalization)
  Sender: FDA-Public Use
  Company Number: US-009507513-1409USA003135

PATIENT
  Age: 66 Year
  Sex: Female

DRUGS (10)
  1. SINGULAIR [Suspect]
     Active Substance: MONTELUKAST SODIUM
     Dosage: 1 DF, UNK (STRENGTH: 10 MG TABLET)
     Route: 048
     Dates: start: 20140903
  2. CARVEDILOL. [Concomitant]
     Active Substance: CARVEDILOL
  3. PREDNISONE. [Suspect]
     Active Substance: PREDNISONE
     Indication: BRONCHITIS
     Dosage: UNK
     Route: 048
  4. OMEPRAZOLE. [Concomitant]
     Active Substance: OMEPRAZOLE
  5. ADVAIR HFA [Suspect]
     Active Substance: FLUTICASONE PROPIONATE\SALMETEROL XINAFOATE
     Indication: CHRONIC OBSTRUCTIVE PULMONARY DISEASE
     Dosage: 1 PUFF (S) (250/50MICROGRAM), TWICE PER DAY
     Route: 055
     Dates: start: 2004
  6. SINGULAIR [Suspect]
     Active Substance: MONTELUKAST SODIUM
     Indication: HYPERSENSITIVITY
     Dosage: UNK
     Route: 048
     Dates: start: 2009, end: 2009
  7. ENALAPRIL MALEATE. [Concomitant]
     Active Substance: ENALAPRIL MALEATE
  8. ATORVASTATIN CALCIUM. [Concomitant]
     Active Substance: ATORVASTATIN CALCIUM
  9. VENTOLIN [Suspect]
     Active Substance: ALBUTEROL SULFATE
     Indication: DYSPNOEA
     Dosage: 1 PUFF, THREE TIMES DAILY
     Route: 055
     Dates: start: 2003
  10. ALENDRONATE SODIUM. [Concomitant]
     Active Substance: ALENDRONATE SODIUM

REACTIONS (10)
  - Osteoporosis [Unknown]
  - Wheezing [Unknown]
  - Pneumonia [Recovered/Resolved]
  - Bronchitis [Unknown]
  - Chronic obstructive pulmonary disease [Unknown]
  - Productive cough [Unknown]
  - Dyspnoea [Unknown]
  - Respiratory tract infection [Unknown]
  - Expired product administered [Unknown]
  - Malaise [Unknown]

NARRATIVE: CASE EVENT DATE: 2009
